FAERS Safety Report 11549036 (Version 1)
Quarter: 2015Q3

REPORT INFORMATION
  Report Type: Report from Study
  Country: AR (occurrence: AR)
  Receive Date: 20150924
  Receipt Date: 20150924
  Transmission Date: 20151125
  Serious: Yes (Death)
  Sender: FDA-Public Use
  Company Number: AR-ABBVIE-15P-007-1469009-00

PATIENT
  Age: 35 Year
  Sex: Female

DRUGS (1)
  1. ZEMPLAR [Suspect]
     Active Substance: PARICALCITOL
     Indication: HYPERPARATHYROIDISM SECONDARY
     Route: 065
     Dates: start: 20130901

REACTIONS (1)
  - Death [Fatal]

NARRATIVE: CASE EVENT DATE: 20150824
